FAERS Safety Report 6172573-2 (Version None)
Quarter: 2009Q2

REPORT INFORMATION
  Report Type: 
  Country: None (occurrence: None)
  Receive Date: 20090428
  Receipt Date: 20090420
  Transmission Date: 20091009
  Serious: Yes (Hospitalization, Other)
  Sender: FDA-Public Use
  Company Number: 2009SP001031

PATIENT
  Age: 54 Year
  Sex: Male

DRUGS (3)
  1. LUNESTA [Suspect]
     Dosage: 3 MG; HS; ORAL
     Route: 048
     Dates: start: 20060701, end: 20090410
  2. LIPITOR [Concomitant]
  3. BENICAR [Concomitant]

REACTIONS (13)
  - ABDOMINAL PAIN UPPER [None]
  - ALOPECIA [None]
  - BACK PAIN [None]
  - BONE MARROW DISORDER [None]
  - CONSCIOUSNESS FLUCTUATING [None]
  - DEAFNESS [None]
  - DYSGEUSIA [None]
  - GASTRIC MUCOSAL LESION [None]
  - LUNG NEOPLASM [None]
  - MEMORY IMPAIRMENT [None]
  - MUSCULOSKELETAL CHEST PAIN [None]
  - PITUITARY HAEMORRHAGE [None]
  - PITUITARY TUMOUR BENIGN [None]
